FAERS Safety Report 4609545-2 (Version None)
Quarter: 2005Q1

REPORT INFORMATION
  Report Type: 
  Country: None (occurrence: None)
  Receive Date: 20050314
  Receipt Date: 20050314
  Transmission Date: 20050727
  Serious: Yes (Hospitalization)
  Sender: FDA-Public Use
  Company Number: None

PATIENT
  Age: 68 Year
  Sex: Male
  Weight: 92.9874 kg

DRUGS (2)
  1. CLINDAMYCIN   150 MG [Suspect]
     Indication: PNEUMONIA
     Dosage: 450 MG   QID   ORAL
     Route: 048
     Dates: start: 20050215, end: 20050221
  2. ZOSYN [Suspect]
     Indication: PNEUMONIA
     Dosage: 4.5 GM   Q6H    ORAL
     Route: 048
     Dates: start: 20050209, end: 20050215

REACTIONS (6)
  - CHRONIC OBSTRUCTIVE AIRWAYS DISEASE EXACERBATED [None]
  - LUNG INFECTION PSEUDOMONAL [None]
  - NEPHRITIS INTERSTITIAL [None]
  - RENAL FAILURE ACUTE [None]
  - STAPHYLOCOCCAL INFECTION [None]
  - URINE OUTPUT DECREASED [None]
